FAERS Safety Report 11416737 (Version 1)
Quarter: 2015Q3

REPORT INFORMATION
  Report Type: Spontaneous
  Country: US (occurrence: US)
  Receive Date: 20150825
  Receipt Date: 20150825
  Transmission Date: 20151125
  Serious: Yes (Hospitalization)
  Sender: FDA-Public Use
  Company Number: US-HORIZON-BUP-0026-2015

PATIENT
  Age: 31 Year
  Sex: Male
  Weight: 79 kg

DRUGS (8)
  1. DECANOATE IM [Concomitant]
  2. ZANTAC [Concomitant]
     Active Substance: RANITIDINE HYDROCHLORIDE
  3. KEPPRA [Concomitant]
     Active Substance: LEVETIRACETAM
  4. PHENOBARBITOL [Concomitant]
  5. CARBAGLU [Concomitant]
     Active Substance: CARGLUMIC ACID
  6. BUPHENYL [Suspect]
     Active Substance: SODIUM PHENYLBUTYRATE
     Indication: CARBAMOYL PHOSPHATE SYNTHETASE DEFICIENCY
  7. CARNITOR [Concomitant]
     Active Substance: LEVOCARNITINE
  8. CITRULLINE [Concomitant]
     Active Substance: CITRULLINE

REACTIONS (2)
  - Hyperammonaemic crisis [Recovered/Resolved]
  - Aggression [Unknown]

NARRATIVE: CASE EVENT DATE: 201505
